FAERS Safety Report 6273351-6 (Version None)
Quarter: 2009Q3

REPORT INFORMATION
  Report Type: 
  Country: None (occurrence: None)
  Receive Date: 20090720
  Receipt Date: 20090709
  Transmission Date: 20100115
  Serious: Yes (Hospitalization)
  Sender: FDA-Public Use
  Company Number: US-ELI_LILLY_AND_COMPANY-US200907002289

PATIENT
  Age: 71 Year
  Sex: Male

DRUGS (1)
  1. GEMZAR [Suspect]
     Indication: LUNG ADENOCARCINOMA
     Dosage: 1800 MG, UNK
     Dates: start: 20090514

REACTIONS (1)
  - HOSPITALISATION [None]
